FAERS Safety Report 5200938-1 (Version None)
Quarter: 2007Q1

REPORT INFORMATION
  Report Type: 
  Country: None (occurrence: None)
  Receive Date: 20070103
  Receipt Date: 20061219
  Transmission Date: 20070707
  Serious: Yes (Death, Hospitalization)
  Sender: FDA-Public Use
  Company Number: 2006SP008359

PATIENT
  Age: 57 Year
  Sex: Male
  Weight: 65 kg

DRUGS (40)
  1. PEG-INTRON [Suspect]
     Indication: HEPATITIS C
     Dosage: 80 MCG;QW;SC
     Route: 058
     Dates: start: 20060630, end: 20061103
  2. REBETOL [Concomitant]
     Indication: CHRONIC HEPATITIS
     Dosage: SEE IMAGE
     Route: 058
     Dates: start: 20060630, end: 20061003
  3. REBETOL [Concomitant]
     Indication: CHRONIC HEPATITIS
     Dosage: SEE IMAGE
     Route: 058
     Dates: start: 20060630, end: 20061026
  4. REBETOL [Concomitant]
     Indication: CHRONIC HEPATITIS
     Dosage: SEE IMAGE
     Route: 058
     Dates: start: 20061027, end: 20061107
  5. ALLOPURINOL [Suspect]
     Indication: GOUT
     Dosage: 200 MG;QD;PO
     Route: 048
     Dates: start: 20061102, end: 20061105
  6. SHAKUYAKUKANZOUTOU (SHAKUYAKUKANZOUTOU ) [Suspect]
     Indication: MUSCLE SPASMS
     Dosage: 2.5 GM;PRN;PO
     Route: 048
     Dates: start: 20061017, end: 20061026
  7. URSO [Concomitant]
  8. AMLODIPINE BESYLATE [Concomitant]
  9. ACINON [Concomitant]
  10. LICOTHION [Concomitant]
  11. PERIACTIN [Concomitant]
  12. TOUGHMAC E [Concomitant]
  13. LAC B [Concomitant]
  14. MICARDIS [Concomitant]
  15. ALLOID G [Concomitant]
  16. ALOSENN [Concomitant]
  17. LASIX [Concomitant]
  18. ALDACTAZIDE-A [Concomitant]
  19. MUCOSOLVAN [Concomitant]
  20. PAXIL [Concomitant]
  21. ASPARA-CA [Concomitant]
  22. LOXONIN [Concomitant]
  23. HALCION [Concomitant]
  24. ALLEGRA [Concomitant]
  25. ALESION [Concomitant]
  26. EVAMYL [Concomitant]
  27. MEILAX [Concomitant]
  28. LENDORMIN [Concomitant]
  29. DEPAS [Concomitant]
  30. MYSLEE [Concomitant]
  31. LIVACT [Concomitant]
  32. MYONAL [Concomitant]
  33. MORIHEPAMIN [Concomitant]
  34. NEO-MINOPHAGEN [Concomitant]
  35. ALBUMIN (HUMAN) [Concomitant]
  36. METILON [Concomitant]
  37. VENETLIN [Concomitant]
  38. ALEVAIRE [Concomitant]
  39. BISOLVON [Concomitant]
  40. HALCION [Concomitant]

REACTIONS (15)
  - ANAEMIA [None]
  - ARTHRITIS [None]
  - BACTERIAL INFECTION [None]
  - CANDIDA SEROLOGY POSITIVE [None]
  - DISSEMINATED INTRAVASCULAR COAGULATION [None]
  - FUNGAL INFECTION [None]
  - GOUT [None]
  - INTERSTITIAL LUNG DISEASE [None]
  - LUNG DISORDER [None]
  - MUSCLE SPASMS [None]
  - OEDEMA PERIPHERAL [None]
  - PULMONARY OEDEMA [None]
  - RENAL FAILURE [None]
  - RESPIRATORY FAILURE [None]
  - SYSTEMIC INFLAMMATORY RESPONSE SYNDROME [None]
